FAERS Safety Report 16225484 (Version 1)
Quarter: 2019Q2

REPORT INFORMATION
  Report Type: Spontaneous
  Country: CN (occurrence: CN)
  Receive Date: 20190422
  Receipt Date: 20190422
  Transmission Date: 20190711
  Serious: Yes (Hospitalization, Other)
  Sender: FDA-Public Use
  Company Number: CN-ELI_LILLY_AND_COMPANY-CN201904008835

PATIENT
  Sex: Female
  Weight: 65 kg

DRUGS (2)
  1. GEMZAR [Suspect]
     Active Substance: GEMCITABINE HYDROCHLORIDE
     Indication: BREAST CANCER
     Dosage: 1500 MG, DAILY
     Route: 042
     Dates: start: 20190315, end: 20190315
  2. NEDAPLATIN [Concomitant]
     Active Substance: NEDAPLATIN
     Indication: BREAST CANCER
     Dosage: 120 MG, UNKNOWN
     Route: 042

REACTIONS (2)
  - Faeces discoloured [Recovered/Resolved]
  - Bone marrow failure [Recovered/Resolved]

NARRATIVE: CASE EVENT DATE: 20190328
